FAERS Safety Report 16350819 (Version 2)
Quarter: 2019Q2

REPORT INFORMATION
  Report Type: Spontaneous
  Country: DE (occurrence: DE)
  Receive Date: 20190524
  Receipt Date: 20190620
  Transmission Date: 20190711
  Serious: Yes (Other)
  Sender: FDA-Public Use
  Company Number: DE-SUN PHARMACEUTICAL INDUSTRIES LTD-2019RR-208642

PATIENT
  Age: 66 Year
  Sex: Female

DRUGS (1)
  1. CLARITHROMYCIN BASICS 500MG FILMTABLETTEN [Suspect]
     Active Substance: CLARITHROMYCIN
     Indication: VIRAL INFECTION
     Dosage: 500 MILLIGRAM, BID
     Route: 048
     Dates: start: 20181217, end: 20181223

REACTIONS (2)
  - Anosmia [Not Recovered/Not Resolved]
  - Parosmia [Not Recovered/Not Resolved]
